FAERS Safety Report 11195353 (Version 1)
Quarter: 2015Q2

REPORT INFORMATION
  Report Type: Report from Study
  Country: US (occurrence: None)
  Receive Date: 20150603
  Receipt Date: 20150603
  Transmission Date: 20150821
  Serious: No
  Sender: FDA-Public Use
  Company Number: 2014TASUS000440

PATIENT
  Age: 77 Year
  Sex: Female
  Weight: 70.7 kg

DRUGS (4)
  1. LISINOPRIL. [Concomitant]
     Active Substance: LISINOPRIL
  2. HETLIOZ [Suspect]
     Active Substance: TASIMELTEON
     Indication: CIRCADIAN RHYTHM SLEEP DISORDER
     Dosage: 20 MG AT BEDTIME, NO FOOD
     Route: 048
     Dates: start: 20140623
  3. SIMVASTATIN. [Concomitant]
     Active Substance: SIMVASTATIN
  4. LEVOTHYROXINE SODIUM. [Concomitant]
     Active Substance: LEVOTHYROXINE SODIUM

REACTIONS (10)
  - Poor quality sleep [None]
  - Decreased appetite [None]
  - Oropharyngeal pain [None]
  - Nausea [None]
  - Asthenia [None]
  - Tremor [None]
  - Insomnia [None]
  - Dysgeusia [None]
  - Dry mouth [None]
  - Headache [None]

NARRATIVE: CASE EVENT DATE: 201406
